FAERS Safety Report 25954032 (Version 1)
Quarter: 2025Q4

REPORT INFORMATION
  Report Type: Spontaneous
  Country: CN (occurrence: CN)
  Receive Date: 20251023
  Receipt Date: 20251023
  Transmission Date: 20260119
  Serious: Yes (Other)
  Sender: ELI LILLY AND COMPANY
  Company Number: CN-ELI_LILLY_AND_COMPANY-CN202510017598

PATIENT
  Age: 66 Year
  Sex: Female

DRUGS (2)
  1. KISUNLA [Suspect]
     Active Substance: DONANEMAB-AZBT
     Indication: Dementia Alzheimer^s type
     Dosage: 700 MG, MONTHLY (1/M)
     Route: 041
     Dates: start: 20250707
  2. KISUNLA [Suspect]
     Active Substance: DONANEMAB-AZBT
     Dosage: 700 MG, MONTHLY (1/M) (LAST INFUSION)
     Route: 041
     Dates: start: 20251008

REACTIONS (6)
  - Cerebral microhaemorrhage [Unknown]
  - Cerebral amyloid angiopathy [Unknown]
  - Cerebral ischaemia [Unknown]
  - Brain oedema [Unknown]
  - Encephalomalacia [Unknown]
  - Sinusitis [Unknown]
